FAERS Safety Report 7478025-1 (Version None)
Quarter: 2011Q2

REPORT INFORMATION
  Report Type: 
  Country: None (occurrence: None)
  Receive Date: 20110511
  Receipt Date: 20110511
  Transmission Date: 20111010
  Serious: Yes (Other)
  Sender: FDA-Public Use
  Company Number: None

PATIENT
  Age: 53 Year
  Sex: Female
  Weight: 83.4619 kg

DRUGS (1)
  1. SAPHRIS [Suspect]
     Indication: BIPOLAR DISORDER
     Dosage: 10 MG 2 TIMES DAY PO
     Route: 048
     Dates: start: 20110208, end: 20110208

REACTIONS (4)
  - TORTICOLLIS [None]
  - CONTUSION [None]
  - SWELLING FACE [None]
  - OCULAR HYPERAEMIA [None]
